FAERS Safety Report 5297235-5 (Version None)
Quarter: 2007Q2

REPORT INFORMATION
  Report Type: 
  Country: None (occurrence: None)
  Receive Date: 20070416
  Receipt Date: 20070403
  Transmission Date: 20071010
  Serious: Yes (Other)
  Sender: FDA-Public Use
  Company Number: US-JNJFOC-20070301186

PATIENT
  Sex: Female

DRUGS (3)
  1. REMICADE [Suspect]
     Indication: DRUG USE FOR UNKNOWN INDICATION
     Route: 042
  2. ADVIL [Concomitant]
  3. CLARITIN [Concomitant]

REACTIONS (4)
  - HEADACHE [None]
  - HYPOGLYCAEMIA [None]
  - INFUSION RELATED REACTION [None]
  - NAUSEA [None]
